FAERS Safety Report 8762155 (Version 2)
Quarter: 2013Q1

REPORT INFORMATION
  Report Type: Spontaneous
  Country: US (occurrence: US)
  Receive Date: 20120830
  Receipt Date: 20130102
  Transmission Date: 20140127
  Serious: Yes (Hospitalization, Other)
  Sender: FDA-Public Use
  Company Number: US-GILEAD-2012-0060386

PATIENT
  Sex: Female

DRUGS (1)
  1. LETAIRIS [Suspect]
     Indication: PULMONARY HYPERTENSION
     Dosage: 5 MG, UNK
     Route: 048
     Dates: start: 20120430

REACTIONS (7)
  - Aspiration [Unknown]
  - Pneumonia [Unknown]
  - Vomiting [Unknown]
  - Malaise [Unknown]
  - Pyrexia [Unknown]
  - Breath sounds abnormal [Unknown]
  - Local swelling [Unknown]
